FAERS Safety Report 20801468 (Version 1)
Quarter: 2022Q2

REPORT INFORMATION
  Report Type: Spontaneous
  Country: DE (occurrence: DE)
  Receive Date: 20220509
  Receipt Date: 20220509
  Transmission Date: 20220721
  Serious: Yes (Hospitalization)
  Sender: FDA-Public Use
  Company Number: DE-ROCHE-3060512

PATIENT
  Age: 68 Year
  Sex: Female
  Weight: 66 kg

DRUGS (17)
  1. CAPECITABINE [Suspect]
     Active Substance: CAPECITABINE
     Indication: Adenocarcinoma of colon
     Dosage: 1750 MILLIGRAM, BID (FIRST CYCLE)
     Route: 048
  2. CAPECITABINE [Suspect]
     Active Substance: CAPECITABINE
     Dosage: 1500 MILLIGRAM, BID (SECOND CYCLE)
     Route: 048
  3. CAPECITABINE [Suspect]
     Active Substance: CAPECITABINE
     Dosage: 2,000 MG/M2 BSA ON DAYS 1-14, FOUR CYCLES OF 21 DAYS EACH
     Route: 048
  4. CAPECITABINE [Suspect]
     Active Substance: CAPECITABINE
     Dosage: 1500 MILLIGRAM, CYCLE,DAY 1-14; HAS RECEIVED 2 OUT OF 4 PLANNED CYCLES OF
     Route: 048
  5. CAPECITABINE [Suspect]
     Active Substance: CAPECITABINE
     Dosage: 1750 MILLIGRAM, CYCLE, 2000 MILLIGRAM/M? ON DAY 1-14; CYLCE 1
     Route: 048
  6. OXALIPLATIN [Suspect]
     Active Substance: OXALIPLATIN
     Indication: Adenocarcinoma of colon
     Dosage: 130 MILLIGRAM/SQ. METER (FIRST CYCLE, BODY SURFACE AREA (BSA) ON DAY 1)
     Route: 042
  7. OXALIPLATIN [Suspect]
     Active Substance: OXALIPLATIN
     Dosage: UNK (SECOND CYCLE DOSAGE APPROXIMATELY 25 % REDUCED NOS)
     Route: 042
  8. OXALIPLATIN [Suspect]
     Active Substance: OXALIPLATIN
     Dosage: UNK, CYCLE, ON DAY 1; HAS RECEIVED 2 OUT OF 4 PLANNED CYCLES OF 21 DAYS EACH
     Route: 042
  9. OXALIPLATIN [Suspect]
     Active Substance: OXALIPLATIN
     Dosage: 130 MILLIGRAM/SQ. METER, CYCLE, ON DAY 1; HAS RECEIVED 2 OUT OF 4 PLANNED CYCLES
     Route: 042
  10. ASPIRIN [Concomitant]
     Active Substance: ASPIRIN
     Dosage: 100 MILLIGRAM, QD (1-0-0)
     Route: 065
  11. CANDESARTAN [Concomitant]
     Active Substance: CANDESARTAN
     Dosage: 16 MILLIGRAM, QD (0.5-0-0)
     Route: 065
  12. ONDANSETRON [Concomitant]
     Active Substance: ONDANSETRON
     Dosage: UNK
     Route: 065
  13. ONDANSETRON [Concomitant]
     Active Substance: ONDANSETRON
     Dosage: UNK, CYCLE, ON DAY 1 (OF CAPOX REGIMEN)
     Route: 065
  14. CITALOPRAM [Concomitant]
     Active Substance: CITALOPRAM HYDROBROMIDE
     Indication: Panic attack
     Dosage: 20 MILLIGRAM, QD (1-0-0)
     Route: 065
  15. METOCLOPRAMIDE [Concomitant]
     Active Substance: METOCLOPRAMIDE
     Dosage: UNK
  16. DEXAMETHASONE [Concomitant]
     Active Substance: DEXAMETHASONE
     Dosage: UNK, CYCLE (ON DAY 1-3 (OF CAPOX REGIMEN))
  17. APREPITANT [Concomitant]
     Active Substance: APREPITANT
     Dosage: UNK (STARTED IN CYCLE 2 (OF CAPOX REGIMEN))

REACTIONS (7)
  - Diarrhoea [Unknown]
  - Asthenia [Unknown]
  - Nausea [Unknown]
  - Fatigue [Unknown]
  - Weight decreased [Recovering/Resolving]
  - Decreased appetite [Unknown]
  - Dysphagia [Unknown]
